FAERS Safety Report 6382289-5 (Version None)
Quarter: 2009Q3

REPORT INFORMATION
  Report Type: 
  Country: None (occurrence: None)
  Receive Date: 20090930
  Receipt Date: 20090922
  Transmission Date: 20100115
  Serious: Yes (Hospitalization)
  Sender: FDA-Public Use
  Company Number: US-B.I. PHARMACEUTICALS,INC./RIDGEFIELD-2009-BP-11180BP

PATIENT
  Age: 66 Year
  Sex: Male

DRUGS (3)
  1. FLOMAX [Suspect]
     Indication: BENIGN PROSTATIC HYPERPLASIA
     Dosage: 0.4 MG
     Route: 048
     Dates: start: 20090722, end: 20090801
  2. VICODIN [Concomitant]
     Indication: BACK PAIN
  3. CELEBREX [Concomitant]
     Indication: DEPRESSION

REACTIONS (1)
  - HYPOTENSION [None]
